FAERS Safety Report 25785943 (Version 1)
Quarter: 2025Q3

REPORT INFORMATION
  Report Type: Spontaneous
  Country: US (occurrence: None)
  Receive Date: 20250909
  Receipt Date: 20250909
  Transmission Date: 20251021
  Serious: Yes (Hospitalization)
  Sender: FDA-CTU
  Company Number: None

PATIENT
  Age: 17 Year
  Sex: Male

DRUGS (8)
  1. TOBRAMYCIN [Suspect]
     Active Substance: TOBRAMYCIN
     Indication: Cystic fibrosis
     Dosage: FREQUENCY : TWICE A DAY;?
     Route: 055
  2. PULMOZYME [Suspect]
     Active Substance: DORNASE ALFA
     Dosage: FREQUENCY : DAILY;?
     Route: 055
  3. VALPROIC ACID [Concomitant]
     Active Substance: VALPROIC ACID
  4. CLONIDINE [Concomitant]
     Active Substance: CLONIDINE
  5. CLOBAZAM [Concomitant]
     Active Substance: CLOBAZAM
  6. RUFINAMIDE [Concomitant]
     Active Substance: RUFINAMIDE
  7. TOPIRAMATE [Concomitant]
     Active Substance: TOPIRAMATE
  8. LEVALBUTEROL [Concomitant]
     Active Substance: LEVALBUTEROL

REACTIONS (1)
  - Pneumonia [None]
